FAERS Safety Report 19672685 (Version 3)
Quarter: 2021Q3

REPORT INFORMATION
  Report Type: Spontaneous
  Country: US (occurrence: US)
  Receive Date: 20210808
  Receipt Date: 20210809
  Transmission Date: 20211014
  Serious: No
  Sender: FDA-Public Use
  Company Number: US-TECHDOW-2021TECHDOW000541

PATIENT
  Sex: Female

DRUGS (1)
  1. HEPARIN SODIUM INJECTION, USP (PARABENS WITHOUT NACL) [Suspect]
     Active Substance: HEPARIN SODIUM
     Indication: THROMBOSIS PROPHYLAXIS
     Route: 058

REACTIONS (1)
  - Injection site reaction [Unknown]
